FAERS Safety Report 5755033-X (Version None)
Quarter: 2008Q2

REPORT INFORMATION
  Report Type: 
  Country: None (occurrence: None)
  Receive Date: 20080527
  Receipt Date: 20080508
  Transmission Date: 20081010
  Serious: Yes (Hospitalization, Other)
  Sender: FDA-Public Use
  Company Number: 2008AL004078

PATIENT
  Sex: Female

DRUGS (1)
  1. DIGOXIN [Suspect]

REACTIONS (4)
  - CEREBROVASCULAR ACCIDENT [None]
  - DYSPNOEA [None]
  - HEADACHE [None]
  - HYPOTENSION [None]
